FAERS Safety Report 8313688-X (Version None)
Quarter: 2012Q2

REPORT INFORMATION
  Report Type: 
  Country: None (occurrence: None)
  Receive Date: 20120426
  Receipt Date: 20120424
  Transmission Date: 20120825
  Serious: Yes (Hospitalization)
  Sender: FDA-Public Use
  Company Number: US-ELI_LILLY_AND_COMPANY-US201204005060

PATIENT
  Sex: Male
  Weight: 86.168 kg

DRUGS (4)
  1. ASPIRIN [Concomitant]
     Dosage: 325 MG, QD
  2. NICOTINE [Concomitant]
     Dosage: 21 MG, QD
     Route: 062
  3. ZOCOR [Concomitant]
     Dosage: 40 MG, QD
  4. PRASUGREL HYDROCHLORIDE [Suspect]
     Dosage: 10 MG, QD
     Dates: start: 20111101, end: 20120402

REACTIONS (1)
  - STENT MALFUNCTION [None]
